FAERS Safety Report 13260113 (Version 1)
Quarter: 2017Q1

REPORT INFORMATION
  Report Type: Spontaneous
  Country: US (occurrence: US)
  Receive Date: 20170222
  Receipt Date: 20170222
  Transmission Date: 20170428
  Serious: Yes (Other)
  Sender: FDA-Public Use
  Company Number: US-TEVA-695692USA

PATIENT
  Age: 66 Year
  Sex: Female
  Weight: 56.75 kg

DRUGS (2)
  1. AMPHETAMINE W/DEXTROAMPHETAMINE [Suspect]
     Active Substance: AMPHETAMINE SULFATE\DEXTROAMPHETAMINE
     Dates: start: 201605
  2. AMPHETAMINE W/DEXTROAMPHETAMINE [Suspect]
     Active Substance: AMPHETAMINE SULFATE\DEXTROAMPHETAMINE
     Indication: ATTENTION DEFICIT/HYPERACTIVITY DISORDER

REACTIONS (9)
  - Product substitution issue [Unknown]
  - Burning mouth syndrome [Recovered/Resolved]
  - Drug ineffective [Unknown]
  - Blood pressure increased [Recovered/Resolved]
  - Hypersensitivity [Recovered/Resolved]
  - Insomnia [Unknown]
  - Drug dose omission [Unknown]
  - Myocardial infarction [Recovered/Resolved]
  - Eye irritation [Recovered/Resolved]

NARRATIVE: CASE EVENT DATE: 2016
